FAERS Safety Report 10930094 (Version 1)
Quarter: 2015Q1

REPORT INFORMATION
  Report Type: Spontaneous
  Country: US (occurrence: US)
  Receive Date: 20150319
  Receipt Date: 20150319
  Transmission Date: 20150721
  Serious: Yes (Hospitalization, Other)
  Sender: FDA-Public Use
  Company Number: US-ASTELLAS-2015US008089

PATIENT
  Sex: Male

DRUGS (1)
  1. XTANDI [Suspect]
     Active Substance: ENZALUTAMIDE
     Indication: PROSTATE CANCER
     Dosage: 160 MG DAILY (04 CAPSULES DAILY)
     Route: 048
     Dates: start: 20141208

REACTIONS (3)
  - Pneumonia [Unknown]
  - Dehydration [Unknown]
  - Influenza [Unknown]
